FAERS Safety Report 22282926 (Version 2)
Quarter: 2023Q2

REPORT INFORMATION
  Report Type: Spontaneous
  Country: KR (occurrence: KR)
  Receive Date: 20230504
  Receipt Date: 20230511
  Transmission Date: 20230722
  Serious: Yes (Other)
  Sender: FDA-Public Use
  Company Number: KR-Accord-355964

PATIENT
  Age: 2 Day
  Sex: Female
  Weight: 2.06 kg

DRUGS (2)
  1. HYDROXYCHLOROQUINE [Suspect]
     Active Substance: HYDROXYCHLOROQUINE
     Indication: Rheumatic disorder
     Route: 064
  2. ASPIRIN [Suspect]
     Active Substance: ASPIRIN
     Indication: Rheumatic disorder
     Route: 064

REACTIONS (2)
  - Anterior chamber cleavage syndrome [Unknown]
  - Foetal exposure during pregnancy [Unknown]
